FAERS Safety Report 6131190-0 (Version None)
Quarter: 2009Q1

REPORT INFORMATION
  Report Type: 
  Country: None (occurrence: None)
  Receive Date: 20090323
  Receipt Date: 20090305
  Transmission Date: 20090719
  Serious: Yes (Other)
  Sender: FDA-Public Use
  Company Number: 8043998

PATIENT
  Age: 82 Year
  Sex: Female

DRUGS (2)
  1. KEPPRA [Suspect]
     Dosage: 500 MG 2/D PO
     Route: 048
     Dates: start: 20080618, end: 20090219
  2. CISORDINOL /00876703/ [Concomitant]
     Dosage: 2 MG 1/D PO
     Route: 048
     Dates: start: 20070726, end: 20081101

REACTIONS (1)
  - TARDIVE DYSKINESIA [None]
